FAERS Safety Report 4311313-6 (Version None)
Quarter: 2004Q1

REPORT INFORMATION
  Report Type: 
  Country: None (occurrence: None)
  Receive Date: 20040302
  Receipt Date: 20040302
  Transmission Date: 20041129
  Serious: Yes (Hospitalization)
  Sender: FDA-Public Use
  Company Number: None

PATIENT
  Age: 72 Year
  Sex: Male
  Weight: 45.3597 kg

DRUGS (5)
  1. DURAGESIC [Suspect]
     Indication: OSTEOARTHRITIS
     Dosage: 25 MCG Q 72HOURS TRANSDERMAL
     Route: 062
     Dates: start: 20030721, end: 20031013
  2. NORVASC [Concomitant]
  3. ACYCLOVIR [Concomitant]
  4. NEURONTIN [Concomitant]
  5. COZAAR [Concomitant]

REACTIONS (1)
  - HERPES ZOSTER [None]
